FAERS Safety Report 8853001 (Version 3)
Quarter: 2013Q1

REPORT INFORMATION
  Report Type: Spontaneous
  Country: JP (occurrence: JP)
  Receive Date: 20121022
  Receipt Date: 20130205
  Transmission Date: 20140127
  Serious: Yes (Hospitalization, Other)
  Sender: FDA-Public Use
  Company Number: JP-GILEAD-2012-0063129

PATIENT
  Age: 67 Year
  Sex: Female

DRUGS (7)
  1. HEPSERA [Suspect]
     Indication: HEPATITIS B
     Dosage: 10MG PER DAY
     Route: 048
     Dates: start: 20091113, end: 20111202
  2. HEPSERA [Suspect]
     Indication: CHRONIC HEPATITIS B
     Dosage: 10MG ALTERNATE DAYS
     Route: 048
     Dates: start: 20111202
  3. BARACLUDE [Concomitant]
     Indication: HEPATITIS B
     Dosage: UNK
     Route: 048
     Dates: start: 200701, end: 200911
  4. BARACLUDE [Concomitant]
     Indication: CHRONIC HEPATITIS B
  5. ZEFIX [Concomitant]
     Indication: HEPATITIS B
     Dosage: 100MG PER DAY
     Route: 048
     Dates: start: 20091113
  6. NU-LOTAN [Concomitant]
     Dosage: 12.5MG PER DAY
     Route: 048
     Dates: start: 20110920
  7. MYSLEE [Concomitant]
     Dosage: 10MG PER DAY
     Route: 048
     Dates: start: 2005

REACTIONS (11)
  - Renal tubular necrosis [Unknown]
  - Fanconi syndrome acquired [Recovering/Resolving]
  - Renal failure acute [Recovering/Resolving]
  - Renal impairment [Unknown]
  - Protein urine [Unknown]
  - Blood alkaline phosphatase increased [Unknown]
  - Blood urine [Unknown]
  - Blood phosphorus decreased [Unknown]
  - Blood potassium decreased [Unknown]
  - Blood creatinine increased [Unknown]
  - Blood uric acid decreased [Unknown]
